FAERS Safety Report 6517691-1 (Version None)
Quarter: 2009Q4

REPORT INFORMATION
  Report Type: 
  Country: None (occurrence: None)
  Receive Date: 20091224
  Receipt Date: 20091216
  Transmission Date: 20100525
  Serious: Yes (Other)
  Sender: FDA-Public Use
  Company Number: CH-SANOFI-AVENTIS-2009SA009597

PATIENT
  Sex: Male
  Weight: 91 kg

DRUGS (8)
  1. ARAVA [Suspect]
     Indication: RHEUMATOID ARTHRITIS
     Route: 048
     Dates: start: 20091009, end: 20091023
  2. SULFASALAZINE [Concomitant]
  3. PREDNISONE [Concomitant]
     Route: 048
  4. PLAQUENIL [Concomitant]
     Route: 048
  5. TRIATEC [Concomitant]
     Route: 048
  6. CONCOR [Concomitant]
  7. ASPIRIN [Concomitant]
  8. SINTROM [Concomitant]

REACTIONS (3)
  - COLITIS [None]
  - DIARRHOEA [None]
  - WEIGHT DECREASED [None]
